FAERS Safety Report 4770752-X (Version None)
Quarter: 2005Q3

REPORT INFORMATION
  Report Type: 
  Country: None (occurrence: None)
  Receive Date: 20050914
  Receipt Date: 20050901
  Transmission Date: 20060218
  Serious: Yes (Hospitalization)
  Sender: FDA-Public Use
  Company Number: 2005123900

PATIENT
  Age: 90 Year
  Sex: Male

DRUGS (5)
  1. CARDURA XL [Suspect]
     Indication: HYPERTENSION
     Dosage: 4 MG (4 MG, EVERY DAY), ORAL
     Route: 048
     Dates: start: 20050421, end: 20050427
  2. BENDROFLUMETHIAZIDE (BENDROFLUMETHIAZIDE) [Concomitant]
  3. ALLOPURINOL [Concomitant]
  4. FINASTERIDE [Concomitant]
  5. ASPIRIN [Concomitant]

REACTIONS (3)
  - BLOOD PRESSURE SYSTOLIC INCREASED [None]
  - FALL [None]
  - JOINT INJURY [None]
